FAERS Safety Report 9205310 (Version 1)
Quarter: 2013Q2

REPORT INFORMATION
  Report Type: Report from Study
  Country: US (occurrence: US)
  Receive Date: 20130402
  Receipt Date: 20130402
  Transmission Date: 20140414
  Serious: Yes (Death)
  Sender: FDA-Public Use
  Company Number: US-BAXTER-2013BAX012304

PATIENT
  Sex: 0

DRUGS (4)
  1. CYCLOPHOSPHAMIDE FOR INJECTION, USP [Suspect]
     Indication: ACUTE LEUKAEMIA
     Dosage: DAY 3
  2. ETOPOSIDE [Suspect]
     Indication: ACUTE LEUKAEMIA
  3. TACROLIMUS [Concomitant]
     Indication: PROPHYLAXIS
  4. SIROLIMUS [Concomitant]
     Indication: PROPHYLAXIS

REACTIONS (1)
  - Graft versus host disease [Fatal]
